FAERS Safety Report 21914290 (Version 1)
Quarter: 2023Q1

REPORT INFORMATION
  Report Type: Spontaneous
  Country: IT (occurrence: IT)
  Receive Date: 20230126
  Receipt Date: 20230126
  Transmission Date: 20230417
  Serious: Yes (Other)
  Sender: FDA-Public Use
  Company Number: IT-MLMSERVICE-20230110-4031104-1

PATIENT
  Age: 63 Year
  Sex: Male

DRUGS (5)
  1. PRAMIPEXOLE [Suspect]
     Active Substance: PRAMIPEXOLE
     Indication: Parkinson^s disease
     Dosage: UNK
     Route: 065
     Dates: end: 2017
  2. LEVODOPA [Concomitant]
     Active Substance: LEVODOPA
     Indication: Parkinson^s disease
     Dosage: 850 MILLIGRAM, ONCE A DAY
     Route: 065
     Dates: start: 2007
  3. LEVODOPA [Concomitant]
     Active Substance: LEVODOPA
     Dosage: UNK (MILD MODIFICATION OF LEVODOPA INTAKE)
     Route: 065
  4. LEVODOPA [Concomitant]
     Active Substance: LEVODOPA
     Dosage: 1125 MILLIGRAM, ONCE A DAY
     Route: 065
     Dates: end: 2007
  5. LEVODOPA [Concomitant]
     Active Substance: LEVODOPA
     Dosage: UNK
     Route: 065
     Dates: start: 1994

REACTIONS (5)
  - Balance disorder [Recovered/Resolved]
  - Dystonia [Recovered/Resolved]
  - Dyskinesia [Recovered/Resolved]
  - Fall [Recovered/Resolved]
  - Gambling disorder [Recovered/Resolved]

NARRATIVE: CASE EVENT DATE: 20170101
